FAERS Safety Report 8825703 (Version 4)
Quarter: 2012Q4

REPORT INFORMATION
  Report Type: 
  Country: US (occurrence: US)
  Receive Date: 20121004
  Receipt Date: 20121221
  Transmission Date: 20130627
  Serious: Yes (Other)
  Sender: FDA-Public Use
  Company Number: US-ASTRAZENECA-2012SE74646

PATIENT
  Age: 58 Year
  Sex: Male

DRUGS (1)
  1. NEXIUM [Suspect]
     Route: 048

REACTIONS (11)
  - Cerebrovascular accident [Unknown]
  - Diabetes mellitus [Unknown]
  - Eye haemorrhage [Unknown]
  - Pulmonary embolism [Unknown]
  - Renal disorder [Unknown]
  - Dysgraphia [Unknown]
  - Paresis [Unknown]
  - Speech disorder [Unknown]
  - Hearing impaired [Unknown]
  - Intentional drug misuse [Unknown]
  - Drug dose omission [Unknown]
